FAERS Safety Report 8283483-9 (Version None)
Quarter: 2012Q2

REPORT INFORMATION
  Report Type: 
  Country: None (occurrence: None)
  Receive Date: 20120413
  Receipt Date: 20120410
  Transmission Date: 20120825
  Serious: Yes (Death, Other)
  Sender: FDA-Public Use
  Company Number: US-JNJFOC-20120405865

PATIENT

DRUGS (29)
  1. ETOPOSIDE [Suspect]
     Dosage: CYCLE 4
     Route: 042
  2. ETOPOSIDE [Suspect]
     Dosage: CYCLE 3
     Route: 042
  3. VINCRISTINE [Suspect]
     Dosage: CYCLE 2
     Route: 042
  4. BLEOMYCIN SULFATE [Suspect]
     Indication: HODGKIN'S DISEASE
     Dosage: CYCLE 1
     Route: 042
  5. PROCARBAZINE HYDROCHLORIDE [Suspect]
     Dosage: CYCLE 3
     Route: 065
  6. PROCARBAZINE HYDROCHLORIDE [Suspect]
     Dosage: CYCLE 4
     Route: 065
  7. BLEOMYCIN SULFATE [Suspect]
     Dosage: CYCLE 3
     Route: 042
  8. ETOPOSIDE [Suspect]
     Indication: HODGKIN'S DISEASE
     Dosage: CYCLE 1
     Route: 042
  9. VINCRISTINE [Suspect]
     Indication: HODGKIN'S DISEASE
     Dosage: CYCLE 4
     Route: 042
  10. NEUPOGEN [Concomitant]
     Indication: PROPHYLAXIS
     Route: 058
  11. BLEOMYCIN SULFATE [Suspect]
     Dosage: CYCLE 2
     Route: 042
  12. BLEOMYCIN SULFATE [Suspect]
     Dosage: CYCLE 4
     Route: 042
  13. ETOPOSIDE [Suspect]
     Dosage: CYCLE 2
     Route: 042
  14. CYCLOPHOSPHAMIDE [Suspect]
     Dosage: CYCLE 2
     Route: 042
  15. PREDNISONE TAB [Suspect]
     Dosage: CYCLE 2
     Route: 048
  16. PREDNISONE TAB [Suspect]
     Dosage: CYCLE 3
     Route: 048
  17. VINCRISTINE [Suspect]
     Dosage: CYCLE 1
     Route: 042
  18. PREDNISONE TAB [Suspect]
     Dosage: CYCLE 4
     Route: 048
  19. PROCARBAZINE HYDROCHLORIDE [Suspect]
     Indication: HODGKIN'S DISEASE
     Dosage: CYCLE 2
     Route: 065
  20. DOXORUBICIN HCL [Suspect]
     Indication: HODGKIN'S DISEASE
     Dosage: CYCLE 4
     Route: 042
  21. DOXORUBICIN HCL [Suspect]
     Dosage: CYCLE 2
     Route: 042
  22. DOXORUBICIN HCL [Suspect]
     Dosage: CYCLE 1
     Route: 042
  23. CYCLOPHOSPHAMIDE [Suspect]
     Indication: HODGKIN'S DISEASE
     Dosage: CYCLE 3
     Route: 042
  24. DOXORUBICIN HCL [Suspect]
     Dosage: CYCLE 3
     Route: 042
  25. CYCLOPHOSPHAMIDE [Suspect]
     Dosage: CYCLE 4
     Route: 042
  26. CYCLOPHOSPHAMIDE [Suspect]
     Dosage: CYCLE 1
     Route: 042
  27. VINCRISTINE [Suspect]
     Dosage: CYCLE 3
     Route: 042
  28. PREDNISONE TAB [Suspect]
     Indication: HODGKIN'S DISEASE
     Dosage: CYCLE 1
     Route: 048
  29. PROCARBAZINE HYDROCHLORIDE [Suspect]
     Dosage: CYCLE 1
     Route: 065

REACTIONS (2)
  - SEPSIS [None]
  - NEUTROPENIA [None]
